FAERS Safety Report 7273099-5 (Version None)
Quarter: 2010Q4

REPORT INFORMATION
  Report Type: 
  Country: None (occurrence: None)
  Receive Date: 20101201
  Receipt Date: 20100406
  Transmission Date: 20110411
  Serious: Yes (Hospitalization)
  Sender: FDA-Public Use
  Company Number: 304535

PATIENT
  Age: 53 Year
  Sex: Male
  Weight: 77.6 kg

DRUGS (17)
  1. NOVOLOG [Suspect]
     Indication: INSULIN-REQUIRING TYPE 2 DIABETES MELLITUS
     Dosage: 12 IU, TID, SUBCUTANEOUS, SLIDING SCALE, TID
     Route: 058
     Dates: start: 20091201
  2. LANTUS [Suspect]
     Indication: INSULIN-REQUIRING TYPE 2 DIABETES MELLITUS
     Dosage: SUBCUTANEOUS
     Route: 058
     Dates: start: 20091201
  3. LANOXIN [Concomitant]
  4. LIPITOR [Concomitant]
  5. ZOCOR [Concomitant]
  6. ZESTRIL [Concomitant]
  7. DIAZEPAM [Concomitant]
  8. LASIX [Concomitant]
  9. SPIRONOLACTONE [Concomitant]
  10. WARFARIN (WARFARIN) [Concomitant]
  11. AMBIEN [Concomitant]
  12. PREDNISONE TAB [Concomitant]
  13. ADVAIR DISKUS 100/50 [Concomitant]
  14. COMBIVENT [Concomitant]
  15. OXYGEN (OXYGEN) [Concomitant]
  16. PROVIGIL [Concomitant]
  17. COREG [Concomitant]

REACTIONS (1)
  - HYPOGLYCAEMIA [None]
